FAERS Safety Report 8076453-7 (Version None)
Quarter: 2012Q1

REPORT INFORMATION
  Report Type: 
  Country: None (occurrence: None)
  Receive Date: 20120125
  Receipt Date: 20120125
  Transmission Date: 20120608
  Serious: Yes (Hospitalization)
  Sender: FDA-Public Use
  Company Number: None

PATIENT
  Sex: Female
  Weight: 59.18 kg

DRUGS (2)
  1. CISPLATIN [Suspect]
     Dosage: 76 MG
     Dates: end: 20120109
  2. TAXOL [Suspect]
     Dosage: 264 MG
     Dates: end: 20120109

REACTIONS (3)
  - PELVIC PAIN [None]
  - ANAEMIA [None]
  - ABDOMINAL PAIN [None]
